FAERS Safety Report 8431314-6 (Version None)
Quarter: 2012Q2

REPORT INFORMATION
  Report Type: 
  Country: None (occurrence: None)
  Receive Date: 20120613
  Receipt Date: 20120605
  Transmission Date: 20120825
  Serious: No
  Sender: FDA-Public Use
  Company Number: US-BIOGENIDEC-2012BI013277

PATIENT
  Sex: Male

DRUGS (2)
  1. AVONEX [Suspect]
     Route: 030
     Dates: start: 20080612, end: 20120112
  2. AVONEX [Suspect]
     Indication: MULTIPLE SCLEROSIS
     Route: 030
     Dates: start: 19970201, end: 20080307

REACTIONS (5)
  - INJECTION SITE ATROPHY [None]
  - MULTIPLE SCLEROSIS [None]
  - NAUSEA [None]
  - MYALGIA [None]
  - HEADACHE [None]
